FAERS Safety Report 15752528 (Version 4)
Quarter: 2019Q1

REPORT INFORMATION
  Report Type: Spontaneous
  Country: AU (occurrence: AU)
  Receive Date: 20181221
  Receipt Date: 20190102
  Transmission Date: 20190417
  Serious: Yes (Hospitalization)
  Sender: FDA-Public Use
  Company Number: PHHY2018AU190754

PATIENT
  Sex: Male

DRUGS (9)
  1. GABAPENTIN. [Suspect]
     Active Substance: GABAPENTIN
     Indication: COMPLEX REGIONAL PAIN SYNDROME
     Dosage: UNK
     Route: 065
  2. PREDNISOLONE. [Suspect]
     Active Substance: PREDNISOLONE
     Indication: COMPLEX REGIONAL PAIN SYNDROME
     Dosage: UNK
     Route: 065
  3. CARBAMAZEPINE. [Suspect]
     Active Substance: CARBAMAZEPINE
     Indication: COMPLEX REGIONAL PAIN SYNDROME
     Dosage: UNK
     Route: 065
  4. MIRTAZAPINA [Suspect]
     Active Substance: MIRTAZAPINE
     Indication: COMPLEX REGIONAL PAIN SYNDROME
     Dosage: UNK
     Route: 065
  5. CLONIDINE. [Suspect]
     Active Substance: CLONIDINE
     Indication: COMPLEX REGIONAL PAIN SYNDROME
     Dosage: UNK
     Route: 065
  6. VALPROATE [Suspect]
     Active Substance: VALPROIC ACID
     Indication: COMPLEX REGIONAL PAIN SYNDROME
     Dosage: UNK
     Route: 065
  7. DULOXETINE. [Suspect]
     Active Substance: DULOXETINE
     Indication: COMPLEX REGIONAL PAIN SYNDROME
     Dosage: UNK
     Route: 065
  8. ALLERGAN [Suspect]
     Active Substance: PAPAIN
     Indication: COMPLEX REGIONAL PAIN SYNDROME
     Dosage: UNK
     Route: 065
  9. VENLAFAXINE [Suspect]
     Active Substance: VENLAFAXINE HYDROCHLORIDE
     Indication: COMPLEX REGIONAL PAIN SYNDROME
     Dosage: UNK
     Route: 065

REACTIONS (2)
  - Treatment failure [Unknown]
  - Ketonuria [Unknown]
